FAERS Safety Report 8173531 (Version 3)
Quarter: 2014Q2

REPORT INFORMATION
  Report Type: Spontaneous
  Country: US (occurrence: US)
  Receive Date: 20111010
  Receipt Date: 20140604
  Transmission Date: 20141212
  Serious: Yes (Hospitalization)
  Sender: FDA-Public Use
  Company Number: US-BIOGENIDEC-2011BI037985

PATIENT
  Age: 38 Year
  Sex: Female

DRUGS (3)
  1. TYSABRI [Suspect]
     Indication: MULTIPLE SCLEROSIS
     Route: 042
  2. TYSABRI [Suspect]
     Indication: MULTIPLE SCLEROSIS
     Route: 042
     Dates: start: 20070405, end: 20110926
  3. GILENYA [Concomitant]

REACTIONS (6)
  - Uhthoff^s phenomenon [Recovered/Resolved]
  - Urticaria [Recovered/Resolved]
  - Hypersensitivity [Not Recovered/Not Resolved]
  - Tremor [Unknown]
  - Clonus [Unknown]
  - Hypoacusis [Unknown]
